FAERS Safety Report 25121099 (Version 1)
Quarter: 2025Q1

REPORT INFORMATION
  Report Type: Spontaneous
  Country: US (occurrence: US)
  Receive Date: 20250326
  Receipt Date: 20250326
  Transmission Date: 20250408
  Serious: No
  Sender: ACCORD
  Company Number: US-Accord-409711

PATIENT
  Age: 75 Year
  Sex: Male

DRUGS (2)
  1. PRASUGREL [Suspect]
     Active Substance: PRASUGREL
     Indication: Coronary artery disease
     Dates: start: 20240112
  2. HEPARIN [Concomitant]
     Active Substance: HEPARIN SODIUM

REACTIONS (1)
  - Coagulation test abnormal [Unknown]

NARRATIVE: CASE EVENT DATE: 20240112
